FAERS Safety Report 14206643 (Version 2)
Quarter: 2023Q2

REPORT INFORMATION
  Report Type: Spontaneous
  Country: DE (occurrence: DE)
  Receive Date: 20171120
  Receipt Date: 20230620
  Transmission Date: 20230721
  Serious: Yes (Hospitalization, Other)
  Sender: FDA-Public Use
  Company Number: DE-ACTAVIS-2005B-01336

PATIENT
  Sex: Female

DRUGS (1)
  1. PAROXETINE [Suspect]
     Active Substance: PAROXETINE
     Indication: Anxiety disorder
     Dosage: UNK
     Route: 064

REACTIONS (5)
  - Neonatal seizure [Recovered/Resolved]
  - Bradycardia neonatal [Recovered/Resolved]
  - Hypotonia neonatal [Recovered/Resolved]
  - Hypopnoea [Recovered/Resolved]
  - Foetal exposure during pregnancy [Unknown]
